FAERS Safety Report 26176384 (Version 1)
Quarter: 2025Q4

REPORT INFORMATION
  Report Type: Spontaneous
  Country: CN (occurrence: CN)
  Receive Date: 20251218
  Receipt Date: 20251218
  Transmission Date: 20260118
  Serious: Yes (Other)
  Sender: ELI LILLY AND COMPANY
  Company Number: CN-Merck Healthcare KGaA-2025063459

PATIENT
  Age: 76 Year
  Sex: Female
  Weight: 50 kg

DRUGS (5)
  1. ERBITUX [Suspect]
     Active Substance: CETUXIMAB
     Indication: Colon cancer
     Dosage: 200 MG, UNK
     Route: 041
     Dates: start: 20251122, end: 20251122
  2. IRINOTECAN HYDROCHLORIDE [Suspect]
     Active Substance: IRINOTECAN HYDROCHLORIDE
     Indication: Colon cancer
     Dosage: 200 MG, DAILY
     Route: 041
     Dates: start: 20251122, end: 20251122
  3. FLUOROURACIL [Suspect]
     Active Substance: FLUOROURACIL
     Indication: Colon cancer
     Dosage: 3.5 G, DAILY
     Route: 041
     Dates: start: 20251122, end: 20251122
  4. SODIUM CHLORIDE [Concomitant]
     Active Substance: SODIUM CHLORIDE
     Indication: Medication dilution
     Dosage: 250 ML, UNK
     Route: 041
     Dates: start: 20251122, end: 20251122
  5. SODIUM CHLORIDE [Concomitant]
     Active Substance: SODIUM CHLORIDE
     Dosage: 100 ML, DAILY
     Route: 041
     Dates: start: 20251122, end: 20251122

REACTIONS (2)
  - Neutrophil count decreased [Recovering/Resolving]
  - White blood cell count decreased [Recovering/Resolving]

NARRATIVE: CASE EVENT DATE: 20251205
